FAERS Safety Report 8470564-X (Version None)
Quarter: 2012Q2

REPORT INFORMATION
  Report Type: 
  Country: None (occurrence: None)
  Receive Date: 20120627
  Receipt Date: 20120620
  Transmission Date: 20120825
  Serious: Yes (Other)
  Sender: FDA-Public Use
  Company Number: PHHY2012FR054506

PATIENT
  Age: 67 Year
  Sex: Female

DRUGS (2)
  1. CLONAZEPAM [Concomitant]
  2. TEGRETOL [Suspect]
     Indication: FACIAL NEURALGIA
     Dosage: 300 MG, DAILY

REACTIONS (2)
  - OSTEOARTHRITIS [None]
  - SOMNOLENCE [None]
